FAERS Safety Report 23956558 (Version 1)
Quarter: 2024Q2

REPORT INFORMATION
  Report Type: Spontaneous
  Country: ZA (occurrence: None)
  Receive Date: 20240610
  Receipt Date: 20240610
  Transmission Date: 20240715
  Serious: Yes (Hospitalization)
  Sender: FDA-Public Use
  Company Number: 2024A130531

PATIENT
  Age: 73 Year
  Sex: Female

DRUGS (6)
  1. BUDESONIDE\FORMOTEROL [Suspect]
     Active Substance: BUDESONIDE\FORMOTEROL
     Indication: Asthma
     Dosage: 160/4.5 UG/INHAL, UNKNOWN UNKNOWN
     Route: 055
  2. GLICLAZIDE [Concomitant]
     Active Substance: GLICLAZIDE
     Indication: Hypertension
     Dosage: 60.0MG UNKNOWN
     Route: 048
  3. PREGABALIN [Concomitant]
     Active Substance: PREGABALIN
     Indication: Pain
     Dosage: 75.0MG UNKNOWN
     Route: 048
  4. DULOXETINE HYDROCHLORIDE [Concomitant]
     Active Substance: DULOXETINE HYDROCHLORIDE
     Indication: Depression
     Dosage: 60.0MG UNKNOWN
     Route: 048
  5. AMITRIPTYLINE HCL KIARA [Concomitant]
     Indication: Depression
     Dosage: 25.0MG UNKNOWN
     Route: 048
  6. ALBUTEROL [Concomitant]
     Active Substance: ALBUTEROL
     Indication: Asthma
     Dosage: 100.0UG/INHAL UNKNOWN
     Route: 055

REACTIONS (3)
  - Rhinovirus infection [Unknown]
  - H1N1 influenza [Unknown]
  - Respiratory syncytial virus infection [Unknown]
